FAERS Safety Report 23037403 (Version 1)
Quarter: 2023Q4

REPORT INFORMATION
  Report Type: Spontaneous
  Country: US (occurrence: None)
  Receive Date: 20231005
  Receipt Date: 20231005
  Transmission Date: 20240110
  Serious: Yes (Life-Threatening)
  Sender: FDA-Public Use
  Company Number: None

PATIENT
  Age: 47 Year
  Sex: Male
  Weight: 82.35 kg

DRUGS (4)
  1. DUPIXENT [Suspect]
     Active Substance: DUPILUMAB
     Indication: Eosinophilic oesophagitis
     Dosage: OTHER FREQUENCY : WEEKLY;?
     Route: 058
     Dates: start: 20231005
  2. ALBUTEROL [Concomitant]
     Active Substance: ALBUTEROL
  3. PREDNISONE [Concomitant]
     Active Substance: PREDNISONE
     Dates: start: 20230919
  4. OMEPRAZOLE [Concomitant]
     Active Substance: OMEPRAZOLE

REACTIONS (3)
  - Anaphylactic reaction [None]
  - Facial pain [None]
  - Dysgeusia [None]

NARRATIVE: CASE EVENT DATE: 20231005
